FAERS Safety Report 5920072-2 (Version None)
Quarter: 2008Q4

REPORT INFORMATION
  Report Type: 
  Country: None (occurrence: None)
  Receive Date: 20081014
  Receipt Date: 20081006
  Transmission Date: 20090506
  Serious: Yes (Hospitalization)
  Sender: FDA-Public Use
  Company Number: 2008AL010324

PATIENT
  Age: 53 Year
  Sex: Male
  Weight: 90.7194 kg

DRUGS (10)
  1. DIGOXIN [Suspect]
     Indication: CARDIAC DISORDER
     Dosage: 0.25 MG, DAILY, PO
     Route: 048
  2. LORAZEPAM [Concomitant]
  3. EFFEXOR [Concomitant]
  4. BENAZEPRIL HYDROCHLORIDE [Concomitant]
  5. ASPIRIN [Concomitant]
  6. PAROXETINE HCL [Concomitant]
  7. XALATAN [Concomitant]
  8. BETIMOL [Concomitant]
  9. CYMBALTA [Concomitant]
  10. NICODERM CQ [Concomitant]

REACTIONS (8)
  - ASTHENIA [None]
  - DYSPNOEA [None]
  - FATIGUE [None]
  - INSOMNIA [None]
  - LOSS OF CONSCIOUSNESS [None]
  - RETINAL INJURY [None]
  - VISUAL ACUITY REDUCED [None]
  - VOMITING [None]
